FAERS Safety Report 10074455 (Version 1)
Quarter: 2014Q2

REPORT INFORMATION
  Report Type: Spontaneous
  Country: US (occurrence: US)
  Receive Date: 20140411
  Receipt Date: 20140411
  Transmission Date: 20141212
  Serious: No
  Sender: FDA-Public Use
  Company Number: US-SANOFI-AVENTIS-2013SA092060

PATIENT
  Age: 71 Year
  Sex: Male
  Weight: 88 kg

DRUGS (7)
  1. ALLEGRA D [Suspect]
     Indication: HYPERSENSITIVITY
     Dosage: DOSE: 60 MG/120 MG
     Route: 048
  2. ATENOLOL [Concomitant]
     Indication: HYPERTENSION
     Route: 065
  3. AMANTADINE [Concomitant]
     Indication: PARKINSON^S DISEASE
     Route: 065
  4. MONTELUKAST [Concomitant]
     Indication: HYPERSENSITIVITY
     Route: 065
  5. BENZONATATE [Concomitant]
     Route: 065
  6. PANTOPRAZOLE [Concomitant]
     Indication: DYSPEPSIA
     Route: 065
  7. SINEMET [Concomitant]
     Indication: PARKINSON^S DISEASE
     Dosage: DOSE:25- 100 TAB
     Route: 065

REACTIONS (1)
  - Medication residue present [Unknown]
